FAERS Safety Report 9250919 (Version 1)
Quarter: 2013Q1

REPORT INFORMATION
  Report Type: Spontaneous
  Country: US (occurrence: None)
  Receive Date: 20130305
  Receipt Date: 20130305
  Transmission Date: 20140127
  Serious: Yes (Hospitalization, Other)
  Sender: FDA-Public Use
  Company Number: 163-21880-12100742

PATIENT
  Age: 68 Year
  Sex: Male
  Weight: 90.72 kg

DRUGS (12)
  1. REVLIMID [Suspect]
     Indication: CHRONIC LYMPHOCYTIC LEUKAEMIA
     Dosage: 10 MG, 1 IN 1 D, PO
     Route: 048
     Dates: start: 20121001, end: 20121023
  2. RITUXAN (RITUXIMAB) [Concomitant]
  3. ALLOPURINOL [Concomitant]
  4. TYLENOL (PARACETAMOL) [Concomitant]
  5. BENADRYL (DIPHENHYDRAMINE) [Concomitant]
  6. GCSF (GRANULOCYTE COLONY STIMULATING FACTOR) [Concomitant]
  7. DIFLUCAN (FLUCONAZOLE) [Concomitant]
  8. LORATIDINE [Concomitant]
  9. MEROPENEM (MEROPENEM) [Concomitant]
  10. VALTREX (VALACICLOVIR HYDROCHLORIDE) [Concomitant]
  11. VANCOMYCIN (VANCOMYCIN) [Concomitant]
  12. ZOFRAN (ONDANSETRON HYDROCHLORIDE) [Concomitant]

REACTIONS (3)
  - Pyrexia [None]
  - White blood cell count decreased [None]
  - Abdominal pain [None]
